FAERS Safety Report 5388473-1 (Version None)
Quarter: 2007Q3

REPORT INFORMATION
  Report Type: 
  Country: None (occurrence: None)
  Receive Date: 20070716
  Receipt Date: 20070713
  Transmission Date: 20080115
  Serious: Yes (Other)
  Sender: FDA-Public Use
  Company Number: FR-BRISTOL-MYERS SQUIBB COMPANY-13845284

PATIENT
  Age: 72 Year
  Sex: Female

DRUGS (2)
  1. COAPROVEL TABS [Suspect]
     Indication: HYPERTENSION
     Route: 048
     Dates: start: 20070515, end: 20070602
  2. BACTRIM [Suspect]

REACTIONS (2)
  - RENAL FAILURE CHRONIC [None]
  - TOXIC SKIN ERUPTION [None]
